FAERS Safety Report 11949452 (Version 1)
Quarter: 2016Q1

REPORT INFORMATION
  Report Type: Spontaneous
  Country: US (occurrence: None)
  Receive Date: 20160121
  Receipt Date: 20160121
  Transmission Date: 20160526
  Serious: Yes (Life-Threatening)
  Sender: FDA-Public Use
  Company Number: None

PATIENT
  Age: 63 Year
  Sex: Male
  Weight: 118 kg

DRUGS (1)
  1. CISATRACURIUM. [Suspect]
     Active Substance: CISATRACURIUM
     Indication: SURGERY
     Dosage: MG OTHER IV
     Route: 042
     Dates: start: 20160107, end: 20160108

REACTIONS (2)
  - Angioedema [None]
  - Anaphylactic reaction [None]

NARRATIVE: CASE EVENT DATE: 20160108
